FAERS Safety Report 18598838 (Version 1)
Quarter: 2020Q4

REPORT INFORMATION
  Report Type: Spontaneous
  Country: US (occurrence: US)
  Receive Date: 20201210
  Receipt Date: 20201210
  Transmission Date: 20210114
  Serious: Yes (Other)
  Sender: FDA-Public Use
  Company Number: US-JNJFOC-20201207765

PATIENT
  Age: 73 Year
  Sex: Male

DRUGS (2)
  1. ELMIRON [Suspect]
     Active Substance: PENTOSAN POLYSULFATE SODIUM
     Indication: PROSTATITIS
  2. ELMIRON [Suspect]
     Active Substance: PENTOSAN POLYSULFATE SODIUM
     Indication: CYSTITIS
     Route: 048
     Dates: end: 201905

REACTIONS (2)
  - Treatment noncompliance [Unknown]
  - Eye operation [Recovered/Resolved]

NARRATIVE: CASE EVENT DATE: 2015
